FAERS Safety Report 4784998-8 (Version None)
Quarter: 2005Q3

REPORT INFORMATION
  Report Type: 
  Country: None (occurrence: None)
  Receive Date: 20050928
  Receipt Date: 20050915
  Transmission Date: 20060218
  Serious: Yes (Other)
  Sender: FDA-Public Use
  Company Number: S05-USA-04211-01

PATIENT
  Age: 72 Year
  Sex: Female
  Weight: 61.2356 kg

DRUGS (5)
  1. NAMENDA [Suspect]
     Indication: DEMENTIA ALZHEIMER'S TYPE
     Dosage: 10 MG BID PO
     Route: 048
     Dates: start: 20040702, end: 20050401
  2. NAMENDA [Suspect]
     Indication: DEMENTIA ALZHEIMER'S TYPE
     Dosage: 10 MG QD PO
     Route: 048
     Dates: start: 20050401, end: 20050516
  3. REMINYL [Concomitant]
  4. CELEXA [Concomitant]
  5. LISINOPRIL AND HYDROCHLOROTHIAZIDE [Concomitant]

REACTIONS (3)
  - FALL [None]
  - MYOCLONIC EPILEPSY [None]
  - URINARY TRACT INFECTION [None]
